FAERS Safety Report 5446224-6 (Version None)
Quarter: 2007Q3

REPORT INFORMATION
  Report Type: 
  Country: None (occurrence: None)
  Receive Date: 20070907
  Receipt Date: 20070903
  Transmission Date: 20080115
  Serious: Yes (Other)
  Sender: FDA-Public Use
  Company Number: AU-AVENTIS-200718037GDDC

PATIENT
  Age: 76 Year
  Sex: Female

DRUGS (4)
  1. LANTUS [Suspect]
     Route: 058
     Dates: start: 20061001
  2. AUTOPEN INSULIN INJECTION PEN [Suspect]
  3. NOVORAPID [Concomitant]
     Dosage: DOSE: 3-5
     Route: 058
  4. METFORMIN [Concomitant]
     Route: 048

REACTIONS (1)
  - PNEUMONIA [None]
